FAERS Safety Report 16856890 (Version 1)
Quarter: 2019Q3

REPORT INFORMATION
  Report Type: Spontaneous
  Country: PL (occurrence: PL)
  Receive Date: 20190926
  Receipt Date: 20190926
  Transmission Date: 20191005
  Serious: Yes (Hospitalization, Other)
  Sender: FDA-Public Use
  Company Number: PL-AMGEN-POLSP2019154982

PATIENT
  Age: 60 Year
  Sex: Female

DRUGS (11)
  1. RITUXIMAB. [Concomitant]
     Active Substance: RITUXIMAB
     Indication: CHRONIC LYMPHOCYTIC LEUKAEMIA STAGE 4
     Dosage: 640 MG FOR 1CYCLE, 600 MG FOR 2 CYCLE, 850 MG FOR 3 CYCLE,  650 MG FOR 4 CYCLE, CYCLICAL
  2. FILGRASTIM [Suspect]
     Active Substance: FILGRASTIM
     Dosage: 30 MILLION UNIT, QD (FOR 7 DAYS)
     Route: 058
  3. CYCLOPHOSPHAMIDE. [Concomitant]
     Active Substance: CYCLOPHOSPHAMIDE
     Indication: CHRONIC LYMPHOCYTIC LEUKAEMIA STAGE 4
     Dosage: 425 MG FOR 1 CYCLE, 400 MG FOR 2 CYCLE, 400 MG FOR 3 CYCLE,  1000 MG FOR 4 CYCLE, CYCLICAL
  4. METHYLPREDNISOLONE. [Concomitant]
     Active Substance: METHYLPREDNISOLONE
     Indication: CHRONIC LYMPHOCYTIC LEUKAEMIA RECURRENT
  5. METHYLPREDNISOLONE. [Concomitant]
     Active Substance: METHYLPREDNISOLONE
     Indication: CHRONIC LYMPHOCYTIC LEUKAEMIA STAGE 4
  6. DEXAMETHASONE. [Concomitant]
     Active Substance: DEXAMETHASONE
     Indication: CHRONIC LYMPHOCYTIC LEUKAEMIA RECURRENT
  7. RAMIPRIL. [Concomitant]
     Active Substance: RAMIPRIL
     Indication: HYPERTENSION
     Dosage: 5 MILLIGRAM, QD
  8. METFORMIN [Concomitant]
     Active Substance: METFORMIN HYDROCHLORIDE
     Indication: DIABETES MELLITUS
     Dosage: 850 MILLIGRAM, QD
  9. FILGRASTIM [Suspect]
     Active Substance: FILGRASTIM
     Indication: NEUTROPENIA
     Dosage: UNK
     Route: 065
  10. SIMVASTATIN. [Concomitant]
     Active Substance: SIMVASTATIN
     Indication: HYPERCHOLESTEROLAEMIA
     Dosage: 20 MILLIGRAM, QD
  11. DEXAMETHASONE. [Concomitant]
     Active Substance: DEXAMETHASONE
     Indication: CHRONIC LYMPHOCYTIC LEUKAEMIA STAGE 4
     Dosage: 40 MG FOR FIRST LINE, 12 MG FOR SECOND CYCLE, QD

REACTIONS (7)
  - Pulmonary embolism [Unknown]
  - Chronic lymphocytic leukaemia recurrent [Unknown]
  - Haemolytic anaemia [Unknown]
  - Varicose vein [Unknown]
  - Cushingoid [Unknown]
  - Mitral valve prolapse [Unknown]
  - Pyrexia [Unknown]
